FAERS Safety Report 7527863-5 (Version None)
Quarter: 2011Q2

REPORT INFORMATION
  Report Type: 
  Country: None (occurrence: None)
  Receive Date: 20110531
  Receipt Date: 20110518
  Transmission Date: 20111010
  Serious: Yes (Other)
  Sender: FDA-Public Use
  Company Number: JP-2011-10742

PATIENT
  Age: 73 Year
  Sex: Female
  Weight: 52.4 kg

DRUGS (19)
  1. ACARDI (PIMOBENDAN) CAPSULE [Concomitant]
  2. KALGUT (DENOPAMINE) TABLET [Concomitant]
  3. PREDNISOLONE TAB [Concomitant]
  4. WARFARIN (WARFARIN POTASSIUM) TABLET [Concomitant]
  5. FOSAMAC 35MG (ALENDRONATE SODIUM HYDRATE) TABLET [Concomitant]
  6. DIART (AZOSEMIDE) TABLET [Concomitant]
  7. ALDACTONE [Concomitant]
  8. LANIRAPID (METILDIGOXIN) TABLET [Concomitant]
  9. ALLOPURINOL [Concomitant]
  10. REVATIO (SILDENAFIL CITRATE) TABLET [Concomitant]
  11. MEXITIL [Concomitant]
  12. AMARYL [Concomitant]
  13. ALFAROL (ALFACALCIDOL) CAPSULE [Concomitant]
  14. FERO-GRADUMET (DRIED FERROUS SULFATE) TABLET [Concomitant]
  15. SAMSCA [Suspect]
     Indication: CARDIAC FAILURE CHRONIC
     Dosage: 15 MG MILLIGRAM(S), QD, ORAL
     Route: 048
     Dates: start: 20110428, end: 20110430
  16. ZANTAC (RANITIDINE HYDROCHLORIDE) TABLET [Concomitant]
  17. CETAPRIL (ALACEPRIL) TABLET [Concomitant]
  18. LASIX [Concomitant]
  19. HACHIMI-JIO-GAN (HACHIMI-JIO-GAN) GRANULES [Concomitant]

REACTIONS (6)
  - ASPARTATE AMINOTRANSFERASE INCREASED [None]
  - CARDIAC FAILURE [None]
  - CONDITION AGGRAVATED [None]
  - BLOOD BILIRUBIN INCREASED [None]
  - ALANINE AMINOTRANSFERASE INCREASED [None]
  - HEPATIC FUNCTION ABNORMAL [None]
